FAERS Safety Report 21359762 (Version 1)
Quarter: 2022Q3

REPORT INFORMATION
  Report Type: Spontaneous
  Country: US (occurrence: None)
  Receive Date: 20220921
  Receipt Date: 20220921
  Transmission Date: 20221027
  Serious: Yes (Death, Life-Threatening, Hospitalization)
  Sender: FDA-Public Use
  Company Number: None

PATIENT
  Sex: Female
  Weight: 86.18 kg

DRUGS (2)
  1. KYLEENA [Suspect]
     Active Substance: LEVONORGESTREL
  2. UNSPECIFIED INGREDIENT [Suspect]
     Active Substance: UNSPECIFIED INGREDIENT

REACTIONS (8)
  - Pain [None]
  - Dyspnoea [None]
  - Dizziness [None]
  - Internal haemorrhage [None]
  - Ectopic pregnancy [None]
  - Emotional disorder [None]
  - Pregnancy with contraceptive device [None]
  - Exposure during pregnancy [None]

NARRATIVE: CASE EVENT DATE: 20220303
